FAERS Safety Report 5309540-4 (Version None)
Quarter: 2007Q2

REPORT INFORMATION
  Report Type: 
  Country: None (occurrence: None)
  Receive Date: 20070427
  Receipt Date: 20060926
  Transmission Date: 20071010
  Serious: No
  Sender: FDA-Public Use
  Company Number: US-GLAXOSMITHKLINE-A0621489A

PATIENT
  Sex: Female

DRUGS (2)
  1. DEXEDRINE [Suspect]
     Indication: NARCOLEPSY
     Dosage: 10MG TWICE PER DAY
     Route: 048
     Dates: start: 20060701
  2. PROVENTIL-HFA [Concomitant]

REACTIONS (1)
  - SOMNOLENCE [None]
